FAERS Safety Report 4412825-7 (Version None)
Quarter: 2004Q3

REPORT INFORMATION
  Report Type: 
  Country: None (occurrence: None)
  Receive Date: 20040730
  Receipt Date: 20040730
  Transmission Date: 20050211
  Serious: No
  Sender: FDA-Public Use
  Company Number: None

PATIENT
  Age: 85 Year
  Sex: Female
  Weight: 45.3597 kg

DRUGS (9)
  1. ISOXSURPRINE 10 MG VASODILAN [Suspect]
     Indication: HYPERTENSION
     Dosage: 10 MG QAM ORAL
     Route: 048
     Dates: start: 20040417, end: 20040424
  2. METOPROLOL [Concomitant]
  3. IMDUR [Concomitant]
  4. PLAVIX [Concomitant]
  5. CALCIUM CARBONATE [Concomitant]
  6. VIT C [Concomitant]
  7. PREVACID [Concomitant]
  8. TYL # 3 [Concomitant]
  9. ZINC OXIDE AND SILVADENE CREAMS [Concomitant]

REACTIONS (1)
  - ANGIONEUROTIC OEDEMA [None]
